FAERS Safety Report 9347053 (Version 1)
Quarter: 2013Q2

REPORT INFORMATION
  Report Type: Spontaneous
  Country: BR (occurrence: BR)
  Receive Date: 20130613
  Receipt Date: 20130613
  Transmission Date: 20140414
  Serious: Yes (Other)
  Sender: FDA-Public Use
  Company Number: BR-GLAXOSMITHKLINE-A1027002A

PATIENT
  Age: 61 Year
  Sex: Male
  Weight: 89 kg

DRUGS (9)
  1. COMBODART [Suspect]
     Indication: BENIGN PROSTATIC HYPERPLASIA
     Dosage: 1CAP IN THE MORNING
     Route: 048
     Dates: start: 20130501, end: 20130515
  2. METFORMIN [Concomitant]
     Dosage: 850MG THREE TIMES PER DAY
     Route: 048
     Dates: start: 2011
  3. ATENOLOL [Concomitant]
     Dosage: 50MG IN THE MORNING
     Route: 048
     Dates: start: 2008
  4. SIMVASTATIN [Concomitant]
     Dosage: 20MG AT NIGHT
     Route: 048
     Dates: start: 2011
  5. OMEPRAZOLE [Concomitant]
     Dosage: 20MG PER DAY
     Route: 048
     Dates: start: 201303
  6. NORTRIPTYLINE [Concomitant]
     Dosage: 50MG AT NIGHT
     Route: 048
     Dates: start: 2011
  7. ACETAMINOPHEN [Concomitant]
     Dosage: 100MG AT NIGHT
     Route: 048
     Dates: start: 2011
  8. SODIUM DICLOFENAC [Concomitant]
     Dosage: 10MG AT NIGHT
     Route: 048
     Dates: start: 2011
  9. DIAZEPAM [Concomitant]
     Dosage: 6MG AT NIGHT
     Route: 048
     Dates: start: 2011

REACTIONS (5)
  - Urinary retention [Recovered/Resolved]
  - Dysuria [Recovered/Resolved]
  - Back pain [Recovered/Resolved]
  - Nervousness [Recovered/Resolved]
  - Drug ineffective [Recovered/Resolved]
